FAERS Safety Report 19670554 (Version 5)
Quarter: 2022Q2

REPORT INFORMATION
  Report Type: Other
  Country: JP (occurrence: JP)
  Receive Date: 20210806
  Receipt Date: 20220531
  Transmission Date: 20220721
  Serious: No
  Sender: FDA-Public Use
  Company Number: JP-CHUGAI-2021007823

PATIENT
  Age: 87 Year
  Sex: Male
  Weight: 66 kg

DRUGS (5)
  1. ENTRECTINIB [Suspect]
     Active Substance: ENTRECTINIB
     Indication: Non-small cell lung cancer
     Route: 048
     Dates: start: 20210720, end: 20210723
  2. ENTRECTINIB [Suspect]
     Active Substance: ENTRECTINIB
     Route: 048
     Dates: start: 20210724, end: 20210726
  3. ENTRECTINIB [Suspect]
     Active Substance: ENTRECTINIB
     Route: 048
     Dates: start: 20210727, end: 20210730
  4. ENTRECTINIB [Suspect]
     Active Substance: ENTRECTINIB
     Dosage: 200 MILLIGRAM, ONCE/3WEEKS
     Route: 048
     Dates: start: 20210731, end: 20220127
  5. ENTRECTINIB [Suspect]
     Active Substance: ENTRECTINIB
     Dosage: 400 MILLIGRAM, QD
     Route: 048
     Dates: start: 20220128, end: 20220223

REACTIONS (2)
  - Blood creatinine increased [Recovered/Resolved]
  - Oedema peripheral [Recovered/Resolved]

NARRATIVE: CASE EVENT DATE: 20210723
